FAERS Safety Report 9964742 (Version 1)
Quarter: 2014Q1

REPORT INFORMATION
  Report Type: Spontaneous
  Country: US (occurrence: US)
  Receive Date: 20140305
  Receipt Date: 20140305
  Transmission Date: 20141002
  Serious: No
  Sender: FDA-Public Use
  Company Number: US-AMGEN-USASP2014001042

PATIENT
  Age: 79 Year
  Sex: Female

DRUGS (2)
  1. ENBREL [Suspect]
     Indication: RHEUMATOID ARTHRITIS
     Dosage: 50 MG, QWK
     Route: 065
     Dates: start: 20130117
  2. LISINOPRIL [Concomitant]
     Dosage: UNK
     Dates: end: 201311

REACTIONS (2)
  - Fatigue [Not Recovered/Not Resolved]
  - Injection site pain [Recovered/Resolved]
